FAERS Safety Report 7148737-8 (Version None)
Quarter: 2010Q4

REPORT INFORMATION
  Report Type: 
  Country: None (occurrence: None)
  Receive Date: 20101209
  Receipt Date: 20101124
  Transmission Date: 20110411
  Serious: Yes (Hospitalization)
  Sender: FDA-Public Use
  Company Number: US-ROCHE-746887

PATIENT
  Sex: Male

DRUGS (15)
  1. BEVACIZUMAB [Suspect]
     Dosage: DOSE: 15 MG/KG ON DAY 1.
     Route: 042
     Dates: start: 20090109
  2. TOPOTECAN [Suspect]
     Dosage: DOSE: 2.3 MG/M2 FOR 05 CONSECUTIVE DAYS ON DAY 1-5
     Route: 048
     Dates: start: 20090109
  3. ACETYLSALICYLIC ACID [Concomitant]
  4. ASCORBIC ACID [Concomitant]
  5. CALCIFEROL [Concomitant]
     Dosage: REPORTED: DOXECALCIFEROL
  6. INSULIN [Concomitant]
     Dosage: REPORTED: INSULIN ASPART
  7. OMEPRAZOLE [Concomitant]
  8. VITAMIN B [Concomitant]
  9. PRAVASTATIN [Concomitant]
  10. FLUOXETINE HYDROCHLORIDE [Concomitant]
  11. TIOTROPIUM BROMIDE [Concomitant]
  12. LEVOTHYROXINE SODIUM [Concomitant]
  13. PROCHLORPERAZINE [Concomitant]
  14. OXYCODONE HCL [Concomitant]
  15. PARACETAMOL [Concomitant]

REACTIONS (5)
  - HYPONATRAEMIA [None]
  - NAUSEA [None]
  - NEOPLASM PROGRESSION [None]
  - PAIN [None]
  - VOMITING [None]
